FAERS Safety Report 6525899-4 (Version None)
Quarter: 2010Q1

REPORT INFORMATION
  Report Type: 
  Country: None (occurrence: None)
  Receive Date: 20100104
  Receipt Date: 20091211
  Transmission Date: 20100710
  Serious: Yes (Other)
  Sender: FDA-Public Use
  Company Number: JP-SANOFI-AVENTIS-2009SA005472

PATIENT
  Age: 42 Year
  Sex: Female

DRUGS (3)
  1. SOLOSTAR [Suspect]
     Dates: end: 20091119
  2. SOLOSTAR [Suspect]
     Dates: start: 20091120
  3. LANTUS [Suspect]

REACTIONS (1)
  - DEVICE MALFUNCTION [None]
